FAERS Safety Report 17050256 (Version 1)
Quarter: 2019Q4

REPORT INFORMATION
  Report Type: Spontaneous
  Country: NL (occurrence: NL)
  Receive Date: 20191119
  Receipt Date: 20191119
  Transmission Date: 20200122
  Serious: Yes (Other)
  Sender: FDA-Public Use
  Company Number: NL-MYLANLABS-2019M1110411

PATIENT
  Sex: Female
  Weight: 95 kg

DRUGS (15)
  1. LIPOSIC [Concomitant]
     Active Substance: CARBOMER
     Dosage: UNK UNK, QD
  2. ACETYLSALICYLIC ACID [Concomitant]
     Active Substance: ASPIRIN
     Dosage: UNK UNK, QD, DISSOLVING TABLET
  3. METOPROLOL. [Concomitant]
     Active Substance: METOPROLOL
     Dosage: UNK, QD
  4. PANTOPRAZOLE [Concomitant]
     Active Substance: PANTOPRAZOLE
     Dosage: UNK, BID
  5. METOPROLOL SUCCINATE. [Concomitant]
     Active Substance: METOPROLOL SUCCINATE
     Indication: HYPERTENSION
     Dosage: UNK, QD
  6. COLECALCIFEROL [Concomitant]
     Active Substance: CHOLECALCIFEROL
     Dosage: UNK
  7. ATORVASTATIN [Suspect]
     Active Substance: ATORVASTATIN
     Indication: PRODUCT USED FOR UNKNOWN INDICATION
     Dosage: UNK
  8. COZAAR [Suspect]
     Active Substance: LOSARTAN POTASSIUM
     Indication: BLOOD PRESSURE ABNORMAL
     Dosage: 50 MILLIGRAM
     Route: 048
     Dates: start: 1994
  9. HYDROCHLOROTHIAZIDE. [Concomitant]
     Active Substance: HYDROCHLOROTHIAZIDE
     Dosage: 1 DOSAGE FORM, QD
  10. MEBEVERINE [Concomitant]
     Active Substance: MEBEVERINE
     Dosage: UNK, BID, RETARD CAPSULE
  11. HYDROXOCOBALAMIN [Concomitant]
     Active Substance: HYDROXOCOBALAMIN
     Dosage: UNK, QM, CONCENTRATION 500 MICROGRAMS PER ML CF
  12. OXYNORM [Concomitant]
     Active Substance: OXYCODONE HYDROCHLORIDE
     Dosage: TRIED 2 TO 3 CAPSULES PER DAY
  13. HYDROXOCOBALAMIN [Concomitant]
     Active Substance: HYDROXOCOBALAMIN
     Dosage: UNK, Q2M
  14. NORMACOL [Concomitant]
     Active Substance: HERBALS\KARAYA GUM
     Dosage: UNK UNK, QD
  15. OCULOTECT                          /06838601/ [Concomitant]
     Dosage: UNK UNK, QD

REACTIONS (10)
  - Peripheral swelling [Unknown]
  - Inflammation [Unknown]
  - Basal cell carcinoma [Unknown]
  - Gout [Unknown]
  - Skin cancer [Recovered/Resolved with Sequelae]
  - Fatigue [Unknown]
  - Pleurisy [Unknown]
  - Muscle spasms [Unknown]
  - Osteomyelitis [Unknown]
  - Myalgia [Unknown]

NARRATIVE: CASE EVENT DATE: 2015
